FAERS Safety Report 19029968 (Version 1)
Quarter: 2021Q1

REPORT INFORMATION
  Report Type: Spontaneous
  Country: US (occurrence: US)
  Receive Date: 20210317
  Receipt Date: 20210317
  Transmission Date: 20210420
  Serious: Yes (Death, Hospitalization)
  Sender: FDA-Public Use
  Company Number: None

PATIENT
  Age: 76 Year
  Sex: Male

DRUGS (1)
  1. OFEV [Suspect]
     Active Substance: NINTEDANIB
     Indication: IDIOPATHIC PULMONARY FIBROSIS
     Route: 048
     Dates: start: 20210112, end: 20210227

REACTIONS (12)
  - Subdural haemorrhage [None]
  - Subarachnoid haemorrhage [None]
  - Brain herniation [None]
  - Clavicle fracture [None]
  - Pneumonia aspiration [None]
  - Intracranial aneurysm [None]
  - Rib fracture [None]
  - Cardio-respiratory arrest [None]
  - Injury [None]
  - Cerebral disorder [None]
  - Facial bones fracture [None]
  - Cerebral haemorrhage [None]

NARRATIVE: CASE EVENT DATE: 20210227
